FAERS Safety Report 6908460-9 (Version None)
Quarter: 2010Q3

REPORT INFORMATION
  Report Type: 
  Country: None (occurrence: None)
  Receive Date: 20100805
  Receipt Date: 20100802
  Transmission Date: 20110219
  Serious: Yes (Other)
  Sender: FDA-Public Use
  Company Number: ES-ROXANE LABORATORIES, INC.-2010-RO-00951RO

PATIENT
  Age: 14 Year
  Sex: Male

DRUGS (3)
  1. METHOTREXATE [Suspect]
     Indication: NON-HODGKIN'S LYMPHOMA
  2. GLUTAMINE [Suspect]
     Indication: NON-HODGKIN'S LYMPHOMA
     Dosage: 20 G
  3. SODIUM BICARBONATE [Suspect]
     Indication: PH URINE ABNORMAL
     Route: 042

REACTIONS (1)
  - NEPHROPATHY TOXIC [None]
